FAERS Safety Report 24438268 (Version 1)
Quarter: 2024Q4

REPORT INFORMATION
  Report Type: Spontaneous
  Country: IT (occurrence: IT)
  Receive Date: 20241015
  Receipt Date: 20241015
  Transmission Date: 20250114
  Serious: Yes (Other)
  Sender: BIOVITRUM
  Company Number: IT-BIOVITRUM-2024-IT-012893

PATIENT
  Age: 21 Year
  Sex: Male

DRUGS (1)
  1. ANAKINRA [Suspect]
     Active Substance: ANAKINRA
     Indication: Focal segmental glomerulosclerosis

REACTIONS (3)
  - Cholecystitis acute [Unknown]
  - Oral infection [Unknown]
  - Off label use [Recovered/Resolved]
